FAERS Safety Report 8417290-0 (Version None)
Quarter: 2012Q2

REPORT INFORMATION
  Report Type: 
  Country: None (occurrence: None)
  Receive Date: 20120606
  Receipt Date: 20120530
  Transmission Date: 20120825
  Serious: Yes (Other)
  Sender: FDA-Public Use
  Company Number: JP-TEVA-341569USA

PATIENT
  Age: 83 Year
  Sex: Male

DRUGS (1)
  1. TREANDA [Suspect]
     Indication: B-CELL LYMPHOMA
     Dosage: 90/MG/M2, UID/QD
     Route: 042
     Dates: start: 20111007

REACTIONS (1)
  - HEPATITIS B DNA INCREASED [None]
